FAERS Safety Report 23575732 (Version 3)
Quarter: 2024Q3

REPORT INFORMATION
  Report Type: Spontaneous
  Country: CA (occurrence: CA)
  Receive Date: 20240228
  Receipt Date: 20240703
  Transmission Date: 20241016
  Serious: Yes (Other)
  Sender: LEO PHARM
  Company Number: None

PATIENT
  Age: 61 Year
  Sex: Male

DRUGS (3)
  1. PROTOPIC [Suspect]
     Active Substance: TACROLIMUS
     Indication: Skin depigmentation
     Route: 003
  2. PROTOPIC [Suspect]
     Active Substance: TACROLIMUS
     Indication: Skin depigmentation
     Dosage: MAINTENANCE
     Route: 003
  3. PROTOPIC [Suspect]
     Active Substance: TACROLIMUS
     Indication: Skin depigmentation
     Route: 003

REACTIONS (3)
  - Product use in unapproved indication [Unknown]
  - Vitiligo [Recovering/Resolving]
  - Skin depigmentation [Recovering/Resolving]
